FAERS Safety Report 23729764 (Version 6)
Quarter: 2024Q4

REPORT INFORMATION
  Report Type: Report from Study
  Country: US (occurrence: US)
  Receive Date: 20240411
  Receipt Date: 20241206
  Transmission Date: 20250114
  Serious: Yes (Other)
  Sender: ABBVIE
  Company Number: US-ABBVIE-5710247

PATIENT
  Age: 68 Year
  Sex: Male

DRUGS (1)
  1. HUMIRA [Suspect]
     Active Substance: ADALIMUMAB
     Indication: Hidradenitis
     Dosage: FORM STRENGTH: 40MG CITRATE FREE
     Route: 058
     Dates: start: 20240202

REACTIONS (11)
  - Hernia [Not Recovered/Not Resolved]
  - Diverticulitis [Unknown]
  - Nausea [Not Recovered/Not Resolved]
  - Back pain [Not Recovered/Not Resolved]
  - Weight increased [Recovering/Resolving]
  - Dyspnoea [Recovering/Resolving]
  - Dysstasia [Recovering/Resolving]
  - Feeling abnormal [Unknown]
  - Abdominal distension [Not Recovered/Not Resolved]
  - Surgical failure [Unknown]
  - Back disorder [Unknown]

NARRATIVE: CASE EVENT DATE: 20240101
